FAERS Safety Report 7788659-2 (Version None)
Quarter: 2011Q3

REPORT INFORMATION
  Report Type: 
  Country: None (occurrence: None)
  Receive Date: 20110930
  Receipt Date: 20110920
  Transmission Date: 20111222
  Serious: Yes (Other)
  Sender: FDA-Public Use
  Company Number: JP-BRISTOL-MYERS SQUIBB COMPANY-15448194

PATIENT
  Age: 34 Year
  Sex: Female
  Weight: 70 kg

DRUGS (8)
  1. SENIRAN [Concomitant]
     Dosage: TABS
  2. DEPAS [Concomitant]
     Dosage: DEPAS TABS
  3. EURODIN [Concomitant]
     Dosage: TABS
  4. CHLORPROMAZINE [Concomitant]
     Dosage: CHLORPROMAZINE + PREPARATION
  5. AZULENE SODIUM SULFONATE + L-GLUTAMINE [Concomitant]
     Dosage: GRANULE
  6. ABILIFY [Suspect]
     Indication: SCHIZOPHRENIA
     Dosage: ABILIFY TABS 6 MG
     Route: 048
     Dates: start: 20080101, end: 20080901
  7. LORAZEPAM [Concomitant]
     Dosage: TABS
  8. TEPRENONE [Concomitant]
     Dosage: TEPRENONE CAPS

REACTIONS (2)
  - ABORTION INFECTED [None]
  - PREGNANCY [None]
